FAERS Safety Report 25227241 (Version 8)
Quarter: 2025Q4

REPORT INFORMATION
  Report Type: Spontaneous
  Country: CO (occurrence: CO)
  Receive Date: 20250422
  Receipt Date: 20251008
  Transmission Date: 20260118
  Serious: Yes (Hospitalization, Other)
  Sender: BIOMARIN
  Company Number: CO-BIOMARINAP-CO-2025-163897

PATIENT
  Age: 13 Year
  Sex: Female
  Weight: 16 kg

DRUGS (1)
  1. VIMIZIM [Suspect]
     Active Substance: ELOSULFASE ALFA
     Indication: Mucopolysaccharidosis IV
     Dosage: UNK

REACTIONS (10)
  - Spondylitic myelopathy [Recovering/Resolving]
  - Spinal cord compression [Recovering/Resolving]
  - Kyphoscoliosis [Recovering/Resolving]
  - Pneumonia [Recovering/Resolving]
  - Muscular weakness [Recovering/Resolving]
  - Tooth loss [Recovering/Resolving]
  - Respiratory tract inflammation [Recovered/Resolved]
  - Hypoxia [Recovering/Resolving]
  - Pyrexia [Recovering/Resolving]
  - Granuloma [Unknown]

NARRATIVE: CASE EVENT DATE: 20250125
